FAERS Safety Report 6422650-3 (Version None)
Quarter: 2009Q4

REPORT INFORMATION
  Report Type: 
  Country: None (occurrence: None)
  Receive Date: 20091102
  Receipt Date: 20091021
  Transmission Date: 20100525
  Serious: Yes (Other)
  Sender: FDA-Public Use
  Company Number: US-JNJFOC-20091007182

PATIENT
  Age: 60 Year
  Sex: Female
  Weight: 72.58 kg

DRUGS (6)
  1. TYLENOL SINUS SEVERE CONGESTION COOL BURST [Suspect]
     Indication: SINUS CONGESTION
     Route: 048
  2. LOVASTATIN [Concomitant]
     Indication: BLOOD CHOLESTEROL INCREASED
  3. EXTRA STRENGTH TYLENOL [Concomitant]
     Indication: INSOMNIA
  4. MULTI-VITAMINS [Concomitant]
     Indication: ROUTINE HEALTH MAINTENANCE
  5. VITAMIN D [Concomitant]
     Indication: ROUTINE HEALTH MAINTENANCE
  6. FLAXSEED OIL [Concomitant]
     Indication: ROUTINE HEALTH MAINTENANCE

REACTIONS (7)
  - DIARRHOEA [None]
  - DISCOMFORT [None]
  - DYSGEUSIA [None]
  - HEART RATE INCREASED [None]
  - HYPERTENSION [None]
  - MUSCLE SPASMS [None]
  - PRODUCT TAMPERING [None]
